FAERS Safety Report 16640620 (Version 1)
Quarter: 2019Q3

REPORT INFORMATION
  Report Type: Spontaneous
  Country: US (occurrence: US)
  Receive Date: 20190729
  Receipt Date: 20190729
  Transmission Date: 20191004
  Serious: No
  Sender: FDA-Public Use
  Company Number: US-STRIDES ARCOLAB LIMITED-2018SP007953

PATIENT
  Age: 24 Year
  Sex: Male

DRUGS (12)
  1. VITAMIN C [Concomitant]
     Active Substance: ASCORBIC ACID
     Indication: CONJUNCTIVALISATION
     Dosage: 1000 MG DAILY
     Route: 065
  2. LEVOFLOXACIN. [Concomitant]
     Active Substance: LEVOFLOXACIN
     Indication: CORNEAL TRANSPLANT
     Dosage: UNK
     Route: 065
  3. DIFLUPREDNATE [Concomitant]
     Active Substance: DIFLUPREDNATE
     Indication: CORNEAL TRANSPLANT
     Dosage: UNK
     Route: 061
  4. MYCOPHENOLATE MOFETIL. [Suspect]
     Active Substance: MYCOPHENOLATE MOFETIL
     Indication: CORNEAL TRANSPLANT
     Dosage: 1 MG, BID FOR AT LEAST 18 MONTHS
     Route: 048
  5. GATIFLOXACIN. [Concomitant]
     Active Substance: GATIFLOXACIN
     Indication: CONJUNCTIVALISATION
     Dosage: UNK
     Route: 065
  6. DOXYCYCLINE. [Concomitant]
     Active Substance: DOXYCYCLINE
     Indication: CONJUNCTIVALISATION
     Dosage: 100 MG DAILY
     Route: 048
  7. SULFAMETHOXAZOLE AND TRIMETHOPRIM [Concomitant]
     Active Substance: SULFAMETHOXAZOLE\TRIMETHOPRIM
     Indication: CORNEAL TRANSPLANT
     Dosage: UNK
     Route: 065
  8. TACROLIMUS. [Suspect]
     Active Substance: TACROLIMUS
     Indication: CORNEAL TRANSPLANT
     Dosage: 4 MG, BID
     Route: 048
  9. CYCLOSPORINE. [Concomitant]
     Active Substance: CYCLOSPORINE
     Indication: CORNEAL TRANSPLANT
     Dosage: UNK
     Route: 065
  10. LOTEPREDNOL [Concomitant]
     Active Substance: LOTEPREDNOL
     Indication: CONJUNCTIVALISATION
     Dosage: UNK
     Route: 061
  11. PREDNISONE. [Concomitant]
     Active Substance: PREDNISONE
     Indication: CORNEAL TRANSPLANT
     Dosage: 1 MG/KG, UNKNOWN
     Route: 065
  12. VALGANCICLOVIR. [Concomitant]
     Active Substance: VALGANCICLOVIR
     Indication: CORNEAL TRANSPLANT
     Dosage: UNK
     Route: 065

REACTIONS (1)
  - Off label use [Unknown]
